FAERS Safety Report 12738665 (Version 1)
Quarter: 2016Q3

REPORT INFORMATION
  Report Type: Spontaneous
  Country: US (occurrence: US)
  Receive Date: 20160912
  Receipt Date: 20160912
  Transmission Date: 20161109
  Serious: Yes (Other)
  Sender: FDA-Public Use
  Company Number: None

PATIENT
  Age: 24 Year
  Sex: Female
  Weight: 56.25 kg

DRUGS (1)
  1. CYCLOBENZAPRINE [Suspect]
     Active Substance: CYCLOBENZAPRINE
     Indication: NECK PAIN
     Route: 048
     Dates: start: 20160909, end: 20160912

REACTIONS (4)
  - Sleep disorder [None]
  - Irritability [None]
  - Abnormal behaviour [None]
  - Anger [None]

NARRATIVE: CASE EVENT DATE: 20160909
